FAERS Safety Report 9483751 (Version 2)
Quarter: 2013Q3

REPORT INFORMATION
  Report Type: Spontaneous
  Country: US (occurrence: US)
  Receive Date: 20130828
  Receipt Date: 20130828
  Transmission Date: 20140515
  Serious: Yes (Hospitalization)
  Sender: FDA-Public Use
  Company Number: US-AMGEN-KDL318627

PATIENT
  Age: 61 Year
  Sex: Male

DRUGS (3)
  1. ENBREL [Suspect]
     Indication: PSORIASIS
     Dosage: 50 MG, 2 TIMES/WK
     Route: 058
     Dates: start: 20080201
  2. UNSPECIFIED TOPICAL PRODUCT [Concomitant]
     Dosage: UNK UNK, UNK
     Route: 061
  3. WARFARIN SODIUM [Concomitant]

REACTIONS (7)
  - Chest pain [Unknown]
  - Pituitary tumour [Unknown]
  - Haemorrhage [Unknown]
  - Headache [Unknown]
  - Psoriasis [Unknown]
  - Therapeutic response decreased [Not Recovered/Not Resolved]
  - Furuncle [Not Recovered/Not Resolved]
